FAERS Safety Report 9831960 (Version 1)
Quarter: 2014Q1

REPORT INFORMATION
  Report Type: Spontaneous
  Country: US (occurrence: US)
  Receive Date: 20140121
  Receipt Date: 20140121
  Transmission Date: 20141002
  Serious: Yes (Other)
  Sender: FDA-Public Use
  Company Number: US-ASTELLAS-2014US000421

PATIENT
  Sex: Male

DRUGS (1)
  1. MYRBETRIQ [Suspect]
     Indication: URINARY INCONTINENCE
     Dosage: 50 MG, UID/QD
     Route: 048
     Dates: start: 201310

REACTIONS (4)
  - Intentional drug misuse [Unknown]
  - Chromaturia [Unknown]
  - Ammonia increased [Unknown]
  - Cystitis [Unknown]
